FAERS Safety Report 9350100 (Version 1)
Quarter: 2013Q2

REPORT INFORMATION
  Report Type: Spontaneous
  Country: US (occurrence: US)
  Receive Date: 20130616
  Receipt Date: 20130616
  Transmission Date: 20140414
  Serious: No
  Sender: FDA-Public Use
  Company Number: US-US-EMD SERONO, INC.-7112428

PATIENT
  Sex: Female

DRUGS (2)
  1. REBIF [Suspect]
     Indication: MULTIPLE SCLEROSIS
     Dates: start: 20100615
  2. REBIF [Suspect]
     Dates: start: 20120208

REACTIONS (2)
  - Benign breast neoplasm [Not Recovered/Not Resolved]
  - Uterine leiomyoma [Not Recovered/Not Resolved]
